FAERS Safety Report 9688836 (Version 1)
Quarter: 2013Q4

REPORT INFORMATION
  Report Type: Spontaneous
  Country: US (occurrence: None)
  Receive Date: 20131113
  Receipt Date: 20131113
  Transmission Date: 20140711
  Serious: Yes (Hospitalization)
  Sender: FDA-Public Use
  Company Number: US-013379

PATIENT
  Age: 66 Year
  Sex: Male
  Weight: 82.56 kg

DRUGS (15)
  1. FIRMAGON [Suspect]
     Indication: PROSTATE CANCER
     Dates: start: 201303
  2. PREDNISONE [Concomitant]
  3. AVODART [Concomitant]
  4. VIVELLE DOT [Concomitant]
  5. LOSARTAN [Concomitant]
  6. METFORMIN [Concomitant]
  7. LYCOPENE [Concomitant]
  8. FISH OIL [Concomitant]
  9. SOY LECITHIN [Concomitant]
  10. URSODIOL [Concomitant]
  11. RESVERATROL [Concomitant]
  12. CURCUMIN [Concomitant]
  13. POMEGRANATE [Concomitant]
  14. VITAMIN D [Concomitant]
  15. ZYTIGA [Concomitant]

REACTIONS (4)
  - Pulmonary embolism [None]
  - Injection site erythema [None]
  - Injection site swelling [None]
  - Injection site pain [None]
